FAERS Safety Report 4955850-X (Version None)
Quarter: 2006Q2

REPORT INFORMATION
  Report Type: 
  Country: None (occurrence: None)
  Receive Date: 20060327
  Receipt Date: 20060327
  Transmission Date: 20061013
  Serious: No
  Sender: FDA-Public Use
  Company Number: None

PATIENT
  Age: 59 Year
  Sex: Male
  Weight: 68.0396 kg

DRUGS (1)
  1. CIPROFLOXACIN 500 MG GATEWAY PHARMACY [Suspect]
     Indication: LYME DISEASE
     Dosage: 500 MG AM AND PM PO
     Route: 048
     Dates: start: 20060201, end: 20060321

REACTIONS (13)
  - ARTHRALGIA [None]
  - ASTHENIA [None]
  - BACK PAIN [None]
  - DYSGEUSIA [None]
  - FEELING ABNORMAL [None]
  - FEELING JITTERY [None]
  - MEMORY IMPAIRMENT [None]
  - MYALGIA [None]
  - SHOULDER PAIN [None]
  - SLEEP DISORDER [None]
  - TENDON DISORDER [None]
  - THINKING ABNORMAL [None]
  - VISUAL DISTURBANCE [None]
